FAERS Safety Report 11059466 (Version 1)
Quarter: 2015Q2

REPORT INFORMATION
  Report Type: Spontaneous
  Country: US (occurrence: None)
  Receive Date: 20150420
  Receipt Date: 20150420
  Transmission Date: 20150821
  Serious: No
  Sender: FDA-Public Use
  Company Number: AEGR001191

PATIENT
  Age: 61 Year
  Sex: Female
  Weight: 67.1 kg

DRUGS (5)
  1. METAMUCIL (PLANTAGO OVATA) [Concomitant]
  2. VITAMIN C (CALCIUM ASCORBATE) [Concomitant]
  3. ASPIRIN (ACETYLSALICYLIC ACID) [Concomitant]
     Active Substance: ASPIRIN
  4. JUXTAPID [Suspect]
     Active Substance: LOMITAPIDE MESYLATE
     Indication: TYPE IIA HYPERLIPIDAEMIA
     Dates: start: 20150209
  5. VITAMIN D3 [Concomitant]
     Active Substance: CHOLECALCIFEROL

REACTIONS (1)
  - Headache [None]

NARRATIVE: CASE EVENT DATE: 20150210
